FAERS Safety Report 24368617 (Version 2)
Quarter: 2024Q4

REPORT INFORMATION
  Report Type: Spontaneous
  Country: US (occurrence: US)
  Receive Date: 20240926
  Receipt Date: 20241124
  Transmission Date: 20250114
  Serious: Yes (Other)
  Sender: BRISTOL-MYERS SQUIBB COMPANY
  Company Number: US-BRISTOL-MYERS SQUIBB COMPANY-2024-150696

PATIENT
  Age: 96 Year
  Sex: Male
  Weight: 71.21 kg

DRUGS (4)
  1. ELIQUIS [Suspect]
     Active Substance: APIXABAN
     Indication: Product used for unknown indication
  2. ALDACTONE [Concomitant]
     Active Substance: SPIRONOLACTONE
     Indication: Product used for unknown indication
     Dosage: TAKE 0.5 TABLETS (12.5MG) BY MOUTH 1 (ONE) TIME EACH DAY
     Route: 048
     Dates: start: 20240626
  3. LIPITOR [Concomitant]
     Active Substance: ATORVASTATIN CALCIUM
     Indication: Product used for unknown indication
     Dosage: TAKE 1 TABLET (40 MG) BY MOUTH AT BEDTIME
     Route: 048
     Dates: start: 20240221
  4. LEVOXYL [Concomitant]
     Active Substance: LEVOTHYROXINE SODIUM
     Indication: Product used for unknown indication
     Dosage: TAKE 1 TABLET (125MCG) BY MOUTH BEFORE BREAKFAST
     Route: 048

REACTIONS (1)
  - Cardiomyopathy [Unknown]
